FAERS Safety Report 6835828-1 (Version None)
Quarter: 2010Q3

REPORT INFORMATION
  Report Type: 
  Country: None (occurrence: None)
  Receive Date: 20100713
  Receipt Date: 20100707
  Transmission Date: 20110219
  Serious: Yes (Hospitalization)
  Sender: FDA-Public Use
  Company Number: JP-ELI_LILLY_AND_COMPANY-JP201003006555

PATIENT
  Age: 28 Year
  Sex: Female

DRUGS (2)
  1. HUMATROPE [Suspect]
     Indication: GROWTH HORMONE DEFICIENCY
     Dosage: UNK, UNK
     Route: 058
     Dates: start: 20080101, end: 20100101
  2. ANTIEPILEPTICS [Concomitant]
     Indication: EPILEPSY
     Route: 065

REACTIONS (2)
  - EPILEPSY [None]
  - SUBARACHNOID HAEMORRHAGE [None]
